FAERS Safety Report 5010586-4 (Version None)
Quarter: 2006Q2

REPORT INFORMATION
  Report Type: 
  Country: None (occurrence: None)
  Receive Date: 20060524
  Receipt Date: 20060524
  Transmission Date: 20061013
  Serious: Yes (Disabling)
  Sender: FDA-Public Use
  Company Number: None

PATIENT
  Age: 64 Year
  Sex: Male

DRUGS (1)
  1. CIPRO [Suspect]
     Indication: URINARY TRACT INFECTION
     Dosage: 500 MG BID PO
     Route: 048
     Dates: start: 20060108, end: 20060118

REACTIONS (1)
  - CONVULSION [None]
